FAERS Safety Report 4568279-3 (Version None)
Quarter: 2005Q1

REPORT INFORMATION
  Report Type: 
  Country: None (occurrence: None)
  Receive Date: 20050131
  Receipt Date: 20050121
  Transmission Date: 20050727
  Serious: Yes (Hospitalization)
  Sender: FDA-Public Use
  Company Number: 2005PK00038

PATIENT
  Age: 37 Year
  Sex: Male
  Weight: 71 kg

DRUGS (7)
  1. GEFITINIB [Suspect]
     Indication: NON-SMALL CELL LUNG CANCER
     Dosage: 250 MG DAILY PO
     Route: 048
     Dates: start: 20041213, end: 20050103
  2. GEFITINIB [Suspect]
     Indication: NON-SMALL CELL LUNG CANCER
     Dosage: 250 MG DAILY PO
     Route: 048
     Dates: start: 20050110
  3. RADIOTHERAPY [Suspect]
     Dosage: CUMULATION DOSE 17 GY
  4. IBUHEXAL [Concomitant]
  5. LISIGAMMA [Concomitant]
  6. RIFUN [Concomitant]
  7. TEPILTA [Concomitant]

REACTIONS (5)
  - LUNG INFILTRATION [None]
  - PERFORMANCE STATUS DECREASED [None]
  - PNEUMONIA BACTERIAL [None]
  - PNEUMONITIS [None]
  - WEIGHT DECREASED [None]
